FAERS Safety Report 10876484 (Version 4)
Quarter: 2015Q3

REPORT INFORMATION
  Report Type: Report from Study
  Country: AT (occurrence: AT)
  Receive Date: 20150228
  Receipt Date: 20150819
  Transmission Date: 20151125
  Serious: Yes (Hospitalization)
  Sender: FDA-Public Use
  Company Number: AT-BIOGENIDEC-2015BI018409

PATIENT
  Age: 47 Year
  Sex: Female
  Weight: 56 kg

DRUGS (2)
  1. BG00012 [Suspect]
     Active Substance: DIMETHYL FUMARATE
     Indication: RELAPSING-REMITTING MULTIPLE SCLEROSIS
     Route: 048
     Dates: start: 20140725, end: 20140731
  2. BG00012 [Suspect]
     Active Substance: DIMETHYL FUMARATE
     Indication: RELAPSING-REMITTING MULTIPLE SCLEROSIS
     Route: 048
     Dates: start: 20140801

REACTIONS (1)
  - Metrorrhagia [Recovered/Resolved]

NARRATIVE: CASE EVENT DATE: 20150218
